FAERS Safety Report 5219506-0 (Version None)
Quarter: 2007Q1

REPORT INFORMATION
  Report Type: 
  Country: None (occurrence: None)
  Receive Date: 20070125
  Receipt Date: 20070115
  Transmission Date: 20070707
  Serious: Yes (Other)
  Sender: FDA-Public Use
  Company Number: CA-ELI_LILLY_AND_COMPANY-CA200701002993

PATIENT
  Age: 16 Year
  Sex: Male
  Weight: 58.5 kg

DRUGS (3)
  1. STRATTERA [Suspect]
     Dosage: UNK, UNK
     Dates: start: 20060701, end: 20060801
  2. STRATTERA [Suspect]
     Dosage: 60 MG, UNK
     Dates: start: 20060801, end: 20061105
  3. STRATTERA [Suspect]
     Dosage: 70 MG, UNK
     Dates: start: 20061106, end: 20061201

REACTIONS (2)
  - AGGRESSION [None]
  - HOMICIDAL IDEATION [None]
